FAERS Safety Report 12064962 (Version 1)
Quarter: 2016Q1

REPORT INFORMATION
  Report Type: Spontaneous
  Country: US (occurrence: US)
  Receive Date: 20160210
  Receipt Date: 20160210
  Transmission Date: 20160526
  Serious: No
  Sender: FDA-Public Use
  Company Number: US-ALLERGAN-1512478US

PATIENT
  Age: 35 Year
  Sex: Male
  Weight: 77.98 kg

DRUGS (3)
  1. BOTOX COSMETIC [Suspect]
     Active Substance: ONABOTULINUMTOXINA
     Dosage: 5 UNITS, SINGLE, CROWS FEET
     Route: 030
     Dates: start: 20150612, end: 20150612
  2. BOTOX COSMETIC [Suspect]
     Active Substance: ONABOTULINUMTOXINA
     Indication: SKIN WRINKLING
     Dosage: 30 UNITS, SINGLE, GLABELLAR
     Route: 030
     Dates: start: 20150612, end: 20150612
  3. BOTOX COSMETIC [Suspect]
     Active Substance: ONABOTULINUMTOXINA
     Dosage: 10 UNITS, SINGLE, FRONTALIS
     Route: 030
     Dates: start: 20150612, end: 20150612

REACTIONS (1)
  - Drug effect incomplete [Unknown]
